FAERS Safety Report 9404941 (Version 2)
Quarter: 2013Q4

REPORT INFORMATION
  Report Type: Spontaneous
  Country: US (occurrence: US)
  Receive Date: 20130717
  Receipt Date: 20131021
  Transmission Date: 20140711
  Serious: Yes (Hospitalization)
  Sender: FDA-Public Use
  Company Number: US-BRISTOL-MYERS SQUIBB COMPANY-19002922

PATIENT
  Age: 82 Year
  Sex: Male
  Weight: 77.1 kg

DRUGS (2)
  1. YERVOY [Suspect]
     Indication: MALIGNANT MELANOMA
     Dosage: SECOND DOSE:03JUN2013
     Dates: start: 20130513
  2. PREDNISONE [Concomitant]

REACTIONS (2)
  - Metastases to central nervous system [Unknown]
  - Arthritis [Unknown]
